FAERS Safety Report 9715627 (Version 2)
Quarter: 2014Q1

REPORT INFORMATION
  Report Type: Spontaneous
  Country: US (occurrence: US)
  Receive Date: 20131127
  Receipt Date: 20140220
  Transmission Date: 20141002
  Serious: Yes (Other)
  Sender: FDA-Public Use
  Company Number: US-BRISTOL-MYERS SQUIBB COMPANY-19827179

PATIENT
  Age: 64 Year
  Sex: Male
  Weight: 136.05 kg

DRUGS (4)
  1. ABILIFY [Suspect]
     Indication: DEPRESSION
     Dosage: AT NIGHT 3 YEARS AGO
  2. ZOLOFT [Concomitant]
  3. BUSPAR [Concomitant]
  4. LOPRESSOR [Concomitant]

REACTIONS (6)
  - Splenectomy [Unknown]
  - Gallbladder disorder [Unknown]
  - Arthropathy [Unknown]
  - Anxiety [Unknown]
  - Fatigue [Unknown]
  - Anger [Unknown]
